FAERS Safety Report 9163288 (Version 2)
Quarter: 2013Q3

REPORT INFORMATION
  Report Type: Spontaneous
  Country: FR (occurrence: FR)
  Receive Date: 20130314
  Receipt Date: 20130827
  Transmission Date: 20140515
  Serious: Yes (Hospitalization)
  Sender: FDA-Public Use
  Company Number: FR-GLAXOSMITHKLINE-B0874299A

PATIENT
  Age: 86 Year
  Sex: Female

DRUGS (10)
  1. DEROXAT [Suspect]
     Indication: DEPRESSION
     Dosage: 20MG PER DAY
     Route: 048
     Dates: start: 201104
  2. ARICEPT [Suspect]
     Indication: PRODUCT USED FOR UNKNOWN INDICATION
     Dosage: 5MG PER DAY
     Route: 048
     Dates: end: 201303
  3. PRETERAX [Suspect]
     Indication: PRODUCT USED FOR UNKNOWN INDICATION
     Dosage: .5UNIT PER DAY
     Route: 048
     Dates: end: 201303
  4. SECTRAL [Suspect]
     Indication: PRODUCT USED FOR UNKNOWN INDICATION
     Dosage: 100MG PER DAY
     Route: 048
  5. MOVICOL [Concomitant]
     Route: 048
  6. UVEDOSE [Concomitant]
     Route: 048
  7. EDUCTYL [Concomitant]
  8. DOLIPRANE [Concomitant]
     Indication: PAIN
  9. PROTEIN POWDER [Concomitant]
  10. NORMACOL [Concomitant]

REACTIONS (8)
  - Upper gastrointestinal haemorrhage [Recovered/Resolved]
  - Rectal haemorrhage [Recovered/Resolved]
  - Duodenal ulcer [Recovering/Resolving]
  - Melaena [Recovered/Resolved]
  - Cardiac failure [Unknown]
  - Weight decreased [Unknown]
  - Amyotrophy [Unknown]
  - Stasis dermatitis [Unknown]
